FAERS Safety Report 6771856-2 (Version None)
Quarter: 2010Q2

REPORT INFORMATION
  Report Type: 
  Country: None (occurrence: None)
  Receive Date: 20100616
  Receipt Date: 20100609
  Transmission Date: 20101027
  Serious: Yes (Other)
  Sender: FDA-Public Use
  Company Number: JP-ASTRAZENECA-2010SE26903

PATIENT
  Age: 34 Year
  Sex: Female

DRUGS (1)
  1. MARCAINE [Suspect]
     Dosage: DOSE UNKNOWN
     Route: 065

REACTIONS (1)
  - MENINGITIS CHEMICAL [None]
